FAERS Safety Report 21600783 (Version 1)
Quarter: 2022Q4

REPORT INFORMATION
  Report Type: Report from Study
  Country: MX (occurrence: MX)
  Receive Date: 20221116
  Receipt Date: 20221116
  Transmission Date: 20230113
  Serious: Yes (Other)
  Sender: FDA-Public Use
  Company Number: MX-002147023-NVSC2022MX256652

PATIENT
  Sex: Female

DRUGS (1)
  1. EXFORGE HCT [Suspect]
     Active Substance: AMLODIPINE BESYLATE\HYDROCHLOROTHIAZIDE\VALSARTAN
     Indication: Hypertension
     Dosage: 1 DOSAGE FORM (5/160/12.5 MG), QD (STARTED APPROXIMATELY 5 YEARS AGO)
     Route: 048

REACTIONS (7)
  - Parkinson^s disease [Recovering/Resolving]
  - Speech disorder [Unknown]
  - Gait disturbance [Unknown]
  - Feeling abnormal [Unknown]
  - Arthritis [Not Recovered/Not Resolved]
  - Movement disorder [Unknown]
  - Fatigue [Unknown]
